FAERS Safety Report 4381300-0 (Version None)
Quarter: 2004Q2

REPORT INFORMATION
  Report Type: 
  Country: None (occurrence: None)
  Receive Date: 20040617
  Receipt Date: 20040617
  Transmission Date: 20050107
  Serious: No
  Sender: FDA-Public Use
  Company Number: None

PATIENT
  Age: 63 Year
  Sex: Female

DRUGS (4)
  1. PACLITAXEL [Suspect]
     Indication: BREAST CANCER METASTATIC
     Dosage: 249 MG IV Q 3 WEEKS
     Route: 042
  2. FAMOTIDINE [Concomitant]
  3. DIPHENHYDRAMINE HCL [Concomitant]
  4. DEXAMETHASONE [Concomitant]

REACTIONS (3)
  - COUGH [None]
  - FLUSHING [None]
  - HOT FLUSH [None]
